FAERS Safety Report 19031717 (Version 6)
Quarter: 2022Q3

REPORT INFORMATION
  Report Type: Spontaneous
  Country: IN (occurrence: IN)
  Receive Date: 20210319
  Receipt Date: 20220720
  Transmission Date: 20221027
  Serious: Yes (Other)
  Sender: FDA-Public Use
  Company Number: IN-PFIZER INC-2018354036

PATIENT
  Age: 64 Year
  Sex: Female

DRUGS (4)
  1. PALBOCICLIB [Suspect]
     Active Substance: PALBOCICLIB
     Indication: Breast cancer metastatic
     Dosage: 125 MG, CYCLIC (21DAY ON-7 DAY OFF), ONCE A DAY
     Route: 048
     Dates: start: 20171009
  2. FASLODEX [Concomitant]
     Active Substance: FULVESTRANT
     Dosage: 250MG IM EACH BUTTOCK
     Route: 030
  3. XGEVA [Concomitant]
     Active Substance: DENOSUMAB
     Dosage: 120 MG (12 WEEKLY (12 WEEKS))
     Route: 058
  4. CALCIUM\CHOLECALCIFEROL [Concomitant]
     Active Substance: CALCIUM\CHOLECALCIFEROL
     Dosage: 500 MG, 1X/DAY

REACTIONS (7)
  - Toothache [Unknown]
  - White blood cell count decreased [Unknown]
  - Positron emission tomogram abnormal [Unknown]
  - Product dispensing error [Unknown]
  - Underdose [Unknown]
  - Off label use [Unknown]
  - Haemoglobin decreased [Unknown]

NARRATIVE: CASE EVENT DATE: 20180901
